FAERS Safety Report 23835673 (Version 1)
Quarter: 2024Q2

REPORT INFORMATION
  Report Type: Report from Study
  Country: US (occurrence: US)
  Receive Date: 20240509
  Receipt Date: 20240509
  Transmission Date: 20240716
  Serious: Yes (Other)
  Sender: FDA-Public Use
  Company Number: US-AUROBINDO-AUR-APL-2024-011753

PATIENT
  Age: 4 Year
  Sex: Male

DRUGS (2)
  1. AMPHOTERICIN B [Suspect]
     Active Substance: AMPHOTERICIN B
     Indication: Cutaneous mucormycosis
     Dosage: 5 MILLIGRAM/KILOGRAM (5MG/KG/DOSE)
     Route: 058
  2. AMPHOTERICIN B [Suspect]
     Active Substance: AMPHOTERICIN B
     Dosage: 3.5 MILLIGRAM/MILLILITRE, ONCE A DAY (1ML)
     Route: 058

REACTIONS (4)
  - Eyelid oedema [Recovered/Resolved]
  - Erythema of eyelid [Recovered/Resolved]
  - Conjunctival oedema [Recovered/Resolved]
  - Off label use [Unknown]
